FAERS Safety Report 8951084 (Version 1)
Quarter: 2012Q4

REPORT INFORMATION
  Report Type: 
  Country: CA (occurrence: CA)
  Receive Date: 20121207
  Receipt Date: 20121207
  Transmission Date: 20130627
  Serious: Yes (Death)
  Sender: FDA-Public Use
  Company Number: PHHY2012CA112155

PATIENT
  Age: 49 Year
  Sex: Female

DRUGS (1)
  1. GLEEVEC [Suspect]
     Indication: ECCRINE CARCINOMA
     Dosage: UNK UKN, UNK
     Route: 048

REACTIONS (1)
  - Death [Fatal]
